FAERS Safety Report 9579917 (Version 3)
Quarter: 2014Q2

REPORT INFORMATION
  Report Type: Spontaneous
  Country: GB (occurrence: None)
  Receive Date: 20130930
  Receipt Date: 20140414
  Transmission Date: 20141212
  Serious: Yes (Hospitalization, Other)
  Sender: FDA-Public Use
  Company Number: GB-ALKEM-000144

PATIENT
  Age: 53 Year
  Sex: Female

DRUGS (15)
  1. MYCOPHENOLATE MOFETIL (MYCOPHENOLATE MOFETIL) [Suspect]
     Indication: SYSTEMIC LUPUS ERYTHEMATOSUS
     Dosage: 2.00000000-G- ORAL
     Route: 048
     Dates: end: 20130215
  2. BELIMUMAB [Suspect]
     Indication: SYSTEMIC LUPUS ERYTHEMATOSUS
     Dosage: 640.000000000-MG- INTRAVENOUS (NOT OTHERWISE SPECIFIED)
     Route: 042
     Dates: start: 20120208
  3. ADCAL-D3(ADCAL-D3) [Concomitant]
  4. ALENDRONATE SODIUM (ALENDRONATE SODIUM) (ALENDRONATE SODIUM) [Concomitant]
  5. FUROSEMIDE (FUROSEMIDE) [Concomitant]
  6. OROTIC ACID (OROTIC ACID) [Concomitant]
  7. HYDROXYCHLOROQUINE (HYDROXYCHLOROQUINE) [Concomitant]
  8. KEPPRA (KEPPRA) [Concomitant]
  9. PARACETAMOL (PARACETAMOL) [Concomitant]
  10. LOSARTAN (LOSARTAN) [Concomitant]
  11. FERROUS FUMARATE (FERROUS FUMARATE) [Concomitant]
  12. PREDNISONE (PREDNISONE) [Concomitant]
  13. ASPIRIN (ASPIRIN) [Concomitant]
  14. LANSOPRAZOLE (LANSOPRAZOLE) [Concomitant]
  15. GABAPENTIN (GABAPENTIN) [Concomitant]

REACTIONS (23)
  - Neutropenia [None]
  - Infection [None]
  - C-reactive protein increased [None]
  - Liver function test abnormal [None]
  - SLE arthritis [None]
  - White blood cell count decreased [None]
  - Platelet count decreased [None]
  - Blood cholesterol increased [None]
  - Lymphocyte count decreased [None]
  - Blood bilirubin increased [None]
  - Alanine aminotransferase increased [None]
  - Blood alkaline phosphatase increased [None]
  - Blood calcium decreased [None]
  - Haemoglobin decreased [None]
  - Metamyelocyte count decreased [None]
  - Metamyelocyte count increased [None]
  - Blood sodium increased [None]
  - Monocytosis [None]
  - Shift to the left [None]
  - Neutrophil toxic granulation present [None]
  - Vitamin B12 increased [None]
  - DNA antibody positive [None]
  - Febrile neutropenia [None]
